FAERS Safety Report 13031657 (Version 1)
Quarter: 2016Q4

REPORT INFORMATION
  Report Type: Report from Study
  Country: US (occurrence: US)
  Receive Date: 20161215
  Receipt Date: 20161215
  Transmission Date: 20170207
  Serious: Yes (Other)
  Sender: FDA-Public Use
  Company Number: US-BAYER-2016-235725

PATIENT
  Age: 32 Year
  Sex: Female

DRUGS (1)
  1. NEXAVAR [Suspect]
     Active Substance: SORAFENIB
     Indication: CHRONIC MYELOID LEUKAEMIA
     Dosage: 400 MG, BID
     Route: 048
     Dates: start: 20161006, end: 2016

REACTIONS (4)
  - Ventricular tachycardia [None]
  - Torsade de pointes [None]
  - Electrocardiogram QT prolonged [None]
  - Off label use [None]

NARRATIVE: CASE EVENT DATE: 2016
